FAERS Safety Report 8941455 (Version 2)
Quarter: 2013Q1

REPORT INFORMATION
  Report Type: Report from Study
  Country: KR (occurrence: KR)
  Receive Date: 20121203
  Receipt Date: 20130104
  Transmission Date: 20140127
  Serious: Yes (Death)
  Sender: FDA-Public Use
  Company Number: KR-ROCHE-1159579

PATIENT
  Age: 62 Year
  Sex: Female

DRUGS (5)
  1. RITUXIMAB [Suspect]
     Indication: B-CELL LYMPHOMA
     Route: 065
  2. CYCLOPHOSPHAMID [Suspect]
     Indication: B-CELL LYMPHOMA
     Route: 065
  3. DOXORUBIN [Suspect]
     Indication: B-CELL LYMPHOMA
     Route: 065
  4. VINCRISTIN [Suspect]
     Indication: B-CELL LYMPHOMA
     Route: 065
  5. PREDNISOLON [Suspect]
     Indication: B-CELL LYMPHOMA
     Route: 065

REACTIONS (2)
  - Infection [Fatal]
  - Hypoxia [None]
